FAERS Safety Report 9613227 (Version 1)
Quarter: 2013Q4

REPORT INFORMATION
  Report Type: Spontaneous
  Country: US (occurrence: US)
  Receive Date: 20131010
  Receipt Date: 20131010
  Transmission Date: 20140711
  Serious: Yes (Hospitalization)
  Sender: FDA-Public Use
  Company Number: US-GLAXOSMITHKLINE-A1044918A

PATIENT
  Age: 77 Year
  Sex: Female

DRUGS (2)
  1. VENTOLIN [Suspect]
     Indication: DYSPNOEA
     Dates: start: 201111
  2. ADVAIR [Suspect]
     Indication: DYSPNOEA
     Route: 055
     Dates: start: 20030901

REACTIONS (2)
  - Cardiac disorder [Unknown]
  - Wheezing [Unknown]
